FAERS Safety Report 25503623 (Version 1)
Quarter: 2025Q3

REPORT INFORMATION
  Report Type: Spontaneous
  Country: RU (occurrence: RU)
  Receive Date: 20250702
  Receipt Date: 20250702
  Transmission Date: 20251021
  Serious: Yes (Other)
  Sender: ROCHE
  Company Number: RU-ROCHE-10000323324

PATIENT
  Age: 23 Year
  Sex: Female

DRUGS (2)
  1. GLOFITAMAB [Suspect]
     Active Substance: GLOFITAMAB
     Indication: Diffuse large B-cell lymphoma
     Route: 065
  2. GLOFITAMAB [Suspect]
     Active Substance: GLOFITAMAB
     Route: 065

REACTIONS (6)
  - Face oedema [Unknown]
  - Erythema [Unknown]
  - Pyrexia [Unknown]
  - Pain [Unknown]
  - Anaemia [Unknown]
  - Thrombocytopenia [Unknown]
